FAERS Safety Report 4272652-0 (Version None)
Quarter: 2004Q1

REPORT INFORMATION
  Report Type: 
  Country: None (occurrence: None)
  Receive Date: 20040115
  Receipt Date: 20040115
  Transmission Date: 20041129
  Serious: Yes (Other)
  Sender: FDA-Public Use
  Company Number: None

PATIENT
  Age: 68 Year
  Sex: Female
  Weight: 90.2658 kg

DRUGS (2)
  1. CLODRONATE [Suspect]
     Indication: BREAST CANCER
     Dosage: 2 TABS Q AM PO
     Route: 048
     Dates: start: 20010517
  2. PLACEBO [Suspect]

REACTIONS (2)
  - HEARING IMPAIRED [None]
  - TINNITUS [None]
